FAERS Safety Report 8377290-6 (Version None)
Quarter: 2012Q2

REPORT INFORMATION
  Report Type: 
  Country: None (occurrence: None)
  Receive Date: 20120522
  Receipt Date: 20120521
  Transmission Date: 20120825
  Serious: Yes (Other)
  Sender: FDA-Public Use
  Company Number: PHEH2012US007819

PATIENT
  Sex: Female
  Weight: 75 kg

DRUGS (16)
  1. FOLIC ACID [Concomitant]
     Dosage: 2 MG, DAILY
     Route: 048
  2. DIAZEPAM [Concomitant]
     Dosage: 5 MG, DAILY
     Route: 048
  3. SERTRALINE HYDROCHLORIDE [Concomitant]
     Indication: DEPRESSION
     Dosage: 50 MG, DAILY
     Route: 048
  4. VITAMIN D [Concomitant]
     Dosage: UNK UKN, DAILY
     Route: 048
  5. SYNTHROID [Concomitant]
     Dosage: 50 UG, DAILY
     Route: 048
  6. TOPIRAMATE [Concomitant]
     Dosage: 200 MG, DAILY
     Route: 048
  7. WARFARIN SODIUM [Concomitant]
     Indication: THROMBOSIS PROPHYLAXIS
     Dosage: 10 MG, DAILY
     Route: 048
  8. LISINOPRIL [Concomitant]
     Indication: HYPERTENSION
     Dosage: 10 MG, DAILY
     Route: 048
  9. LOVENOX [Concomitant]
     Dosage: 120 MG, DAILY
     Route: 058
     Dates: end: 20120326
  10. HYDROCODONE BITARTRATE AND ACETAMINOPHEN [Concomitant]
     Indication: PAIN
     Dosage: 1 DF, Q8H
     Route: 048
  11. VITAMIN B-12 [Concomitant]
     Dosage: 1000 MG, MONTHLY
  12. ENBREL [Concomitant]
     Indication: PSORIASIS
     Dosage: 50 MG, WEEKLY
     Route: 058
  13. VITAMIN E [Concomitant]
     Dosage: UNK UKN, DAILY
     Route: 048
  14. EXJADE [Suspect]
     Indication: IRON OVERLOAD
     Dosage: 1500 MG, QD
     Route: 048
     Dates: start: 20120126, end: 20120318
  15. CLONIDINE [Concomitant]
     Indication: HYPERTENSION
     Dosage: 0.1 MG, WEEKLY
     Route: 062
  16. IBUPROFEN [Concomitant]
     Dosage: 800 MG, PRN
     Route: 048

REACTIONS (1)
  - NODULE [None]
